FAERS Safety Report 7609705-2 (Version None)
Quarter: 2011Q3

REPORT INFORMATION
  Report Type: 
  Country: None (occurrence: None)
  Receive Date: 20110714
  Receipt Date: 20110629
  Transmission Date: 20111222
  Serious: Yes (Death, Other)
  Sender: FDA-Public Use
  Company Number: GB-PFIZER INC-2011071620

PATIENT
  Age: 36 Year
  Sex: Male

DRUGS (20)
  1. TRAMADOL HCL [Interacting]
     Dosage: 50 MG, 1 TO 2 TABS AS NEEDED
  2. QUETIAPINE [Interacting]
  3. FUROSEMIDE [Concomitant]
  4. CHLORDIAZEPOXIDE [Concomitant]
  5. TEMAZEPAM [Concomitant]
  6. TRAZODONE [Interacting]
  7. METOPROLOL [Concomitant]
  8. BENZONATATE [Concomitant]
  9. ACETAMINOPHEN [Concomitant]
  10. ENALAPRIL [Concomitant]
  11. LITHIUM [Concomitant]
  12. VITAMIN B [Concomitant]
  13. METOCLOPRAMIDE [Concomitant]
  14. VENLAFAXINE HCL [Suspect]
     Dosage: 300 MG, 1X/DAY
  15. FOLIC ACID [Concomitant]
  16. LANSOPRAZOLE [Concomitant]
  17. LORAZEPAM [Concomitant]
  18. RANITIDINE [Concomitant]
  19. FAMOTIDINE [Concomitant]
  20. DOCUSATE SODIUM [Concomitant]

REACTIONS (15)
  - LIP INJURY [None]
  - CIRCULATORY COLLAPSE [None]
  - HEPATIC STEATOSIS [None]
  - HYPERTENSIVE HEART DISEASE [None]
  - CONVULSION [None]
  - FACE INJURY [None]
  - CORONARY ARTERY STENOSIS [None]
  - INSOMNIA [None]
  - DRUG INTERACTION [None]
  - FALL [None]
  - TONGUE HAEMORRHAGE [None]
  - EMPHYSEMA [None]
  - CONTUSION [None]
  - TONGUE BITING [None]
  - EXCORIATION [None]
